FAERS Safety Report 24385760 (Version 2)
Quarter: 2024Q4

REPORT INFORMATION
  Report Type: Report from Study
  Country: US (occurrence: US)
  Receive Date: 20241001
  Receipt Date: 20241003
  Transmission Date: 20250114
  Serious: Yes (Other)
  Sender: ALEXION PHARMACEUTICALS
  Company Number: US-AstraZeneca-2024-294797

PATIENT

DRUGS (4)
  1. TAGRISSO [Suspect]
     Active Substance: OSIMERTINIB
     Indication: Neoplasm malignant
  2. TAGRISSO [Suspect]
     Active Substance: OSIMERTINIB
  3. TAGRISSO [Suspect]
     Active Substance: OSIMERTINIB
  4. TAGRISSO [Suspect]
     Active Substance: OSIMERTINIB

REACTIONS (5)
  - Cancer in remission [Recovered/Resolved]
  - Malignant neoplasm progression [Unknown]
  - Fatigue [Unknown]
  - Overweight [Unknown]
  - Brain fog [Unknown]
